FAERS Safety Report 6180468-3 (Version None)
Quarter: 2009Q2

REPORT INFORMATION
  Report Type: 
  Country: None (occurrence: None)
  Receive Date: 20090416
  Receipt Date: 20090403
  Transmission Date: 20091009
  Serious: Yes (Other)
  Sender: FDA-Public Use
  Company Number: THYM-1000867

PATIENT
  Age: 49 Year
  Sex: Male
  Weight: 78.5 kg

DRUGS (16)
  1. THYMOGLOBULIN [Suspect]
     Indication: PROPHYLAXIS AGAINST TRANSPLANT REJECTION
     Dosage: 125 MG, QD, INTRAVENOUS
     Route: 042
     Dates: start: 20081112, end: 20081114
  2. SOLU-MEDROL [Concomitant]
  3. ACETAMINOPHEN [Concomitant]
  4. BENADRYL [Concomitant]
  5. SINGULAIR [Concomitant]
  6. PEPCID (FAMOTIDINE, MAGNESIUM HYDROXIDE) [Concomitant]
  7. SOLUMEDROL IV TAPER (SOLUMEDROL IV TAPER) [Concomitant]
  8. PROGRAF [Concomitant]
  9. CELLCEPT [Concomitant]
  10. CATAPRES-TTS-2 (CLONIDINE) [Concomitant]
  11. HYDRALAZINE (HYDRALAZINE HYDROCHLORIDE) [Concomitant]
  12. METOPROLOL TARTRATE [Concomitant]
  13. ASPIRIN (SALICYLALMIDE) [Concomitant]
  14. NEXIUM (ESOMEPRAZOLE SODIUM) [Concomitant]
  15. THERAGRAN (VITAMINS NOS) [Concomitant]
  16. UNASYN [Concomitant]

REACTIONS (6)
  - HYPERTENSION [None]
  - HYPOALBUMINAEMIA [None]
  - HYPOCALCAEMIA [None]
  - HYPOKALAEMIA [None]
  - PULMONARY OEDEMA [None]
  - RESPIRATORY DISTRESS [None]
